FAERS Safety Report 25539492 (Version 2)
Quarter: 2025Q3

REPORT INFORMATION
  Report Type: Spontaneous
  Country: GB (occurrence: GB)
  Receive Date: 20250710
  Receipt Date: 20250909
  Transmission Date: 20251021
  Serious: Yes (Hospitalization, Other)
  Sender: TEVA
  Company Number: GB-PHARMVIT-4556-3352-ER25-RN1513

PATIENT
  Age: 75 Year
  Sex: Male

DRUGS (1)
  1. PREDNISOLONE [Suspect]
     Active Substance: PREDNISOLONE
     Indication: Product used for unknown indication
     Route: 065

REACTIONS (5)
  - Therapeutic product effect decreased [Recovered/Resolved]
  - Immunosuppression [Unknown]
  - Disseminated tuberculosis [Unknown]
  - Drug interaction [Recovered/Resolved]
  - Vasculitic rash [Recovered/Resolved]
